FAERS Safety Report 11821877 (Version 1)
Quarter: 2015Q4

REPORT INFORMATION
  Report Type: Report from Study
  Country: US (occurrence: US)
  Receive Date: 20151210
  Receipt Date: 20151210
  Transmission Date: 20160305
  Serious: No
  Sender: FDA-Public Use
  Company Number: PHEH2015US025564

PATIENT
  Age: 48 Year
  Sex: Female

DRUGS (1)
  1. GILENYA [Suspect]
     Active Substance: FINGOLIMOD HYDROCHLORIDE
     Indication: MULTIPLE SCLEROSIS
     Dosage: 0.5 MG, QD
     Route: 048
     Dates: start: 20151127

REACTIONS (6)
  - Dizziness [Unknown]
  - Headache [Unknown]
  - Hypoaesthesia [Unknown]
  - Dyspnoea [Unknown]
  - Urinary incontinence [Unknown]
  - Tremor [Unknown]

NARRATIVE: CASE EVENT DATE: 20151203
